FAERS Safety Report 6614945-5 (Version None)
Quarter: 2010Q1

REPORT INFORMATION
  Report Type: 
  Country: None (occurrence: None)
  Receive Date: 20100226
  Receipt Date: 20100203
  Transmission Date: 20100710
  Serious: Yes (Congenital Anomaly)
  Sender: FDA-Public Use
  Company Number: 006284

PATIENT

DRUGS (2)
  1. LEVETIRACETAM [Suspect]
     Dosage: (2000 MG TRANSPLACENTAL)
     Route: 064
  2. TOPIRAMATE [Suspect]
     Dosage: (150 MG TRANSPLACENTAL)
     Route: 064

REACTIONS (2)
  - DIGEORGE'S SYNDROME [None]
  - MATERNAL DRUGS AFFECTING FOETUS [None]
